FAERS Safety Report 10228390 (Version 2)
Quarter: 2014Q3

REPORT INFORMATION
  Report Type: Spontaneous
  Country: US (occurrence: None)
  Receive Date: 20140505
  Receipt Date: 20140808
  Transmission Date: 20150326
  Serious: No
  Sender: FDA-Public Use
  Company Number: US-015142

PATIENT
  Sex: Female

DRUGS (3)
  1. PREPOPIK [Suspect]
     Active Substance: ANHYDROUS CITRIC ACID\MAGNESIUM OXIDE\SODIUM PICOSULFATE
     Indication: BOWEL PREPARATION
     Dosage: FIRST PACKET: 30 MAR 2014 AT 7:00 PM; SECOND PACKET: 31 MAR 2014 AT 8:00 AM
     Route: 048
     Dates: start: 20140330, end: 20140331
  2. LANTUS [Concomitant]
     Active Substance: INSULIN GLARGINE
  3. LOSARTAN [Concomitant]
     Active Substance: LOSARTAN

REACTIONS (1)
  - Drug ineffective [None]

NARRATIVE: CASE EVENT DATE: 20140331
